FAERS Safety Report 23027289 (Version 1)
Quarter: 2023Q4

REPORT INFORMATION
  Report Type: Spontaneous
  Country: FR (occurrence: FR)
  Receive Date: 20231004
  Receipt Date: 20231004
  Transmission Date: 20240110
  Serious: Yes (Life-Threatening, Hospitalization)
  Sender: FDA-Public Use
  Company Number: None

PATIENT
  Age: 54 Year
  Sex: Female

DRUGS (2)
  1. SORIATANE [Suspect]
     Active Substance: ACITRETIN
     Indication: Skin papilloma
     Dates: start: 20200630, end: 20200813
  2. PAROXETINE [Concomitant]
     Active Substance: PAROXETINE
     Indication: Product used for unknown indication

REACTIONS (3)
  - Loss of consciousness [Recovered/Resolved]
  - Deep vein thrombosis [Recovered/Resolved]
  - Pulmonary embolism [Recovered/Resolved with Sequelae]

NARRATIVE: CASE EVENT DATE: 20200801
